FAERS Safety Report 4522038-6 (Version None)
Quarter: 2004Q4

REPORT INFORMATION
  Report Type: 
  Country: None (occurrence: None)
  Receive Date: 20041207
  Receipt Date: 20041118
  Transmission Date: 20050328
  Serious: Yes (Hospitalization, Other)
  Sender: FDA-Public Use
  Company Number: USA041184059

PATIENT
  Age: 75 Year
  Sex: Female
  Weight: 38 kg

DRUGS (2)
  1. FORTEO [Suspect]
     Indication: OSTEOPOROSIS
     Dosage: 20 UG/1 DAY
     Dates: start: 20031201
  2. MACROBID [Concomitant]

REACTIONS (14)
  - BODY HEIGHT DECREASED [None]
  - CARDIAC DISORDER [None]
  - CHOLELITHIASIS [None]
  - DEMYELINATING POLYNEUROPATHY [None]
  - DRUG TOXICITY [None]
  - FALL [None]
  - HIP FRACTURE [None]
  - MARKEDLY REDUCED DIETARY INTAKE [None]
  - MUSCLE ATROPHY [None]
  - PANCREATITIS [None]
  - PERIPHERAL COLDNESS [None]
  - PHARMACEUTICAL PRODUCT COMPLAINT [None]
  - WEIGHT DECREASED [None]
  - WRIST FRACTURE [None]
